FAERS Safety Report 24372726 (Version 1)
Quarter: 2024Q3

REPORT INFORMATION
  Report Type: Spontaneous
  Country: FR (occurrence: FR)
  Receive Date: 20240927
  Receipt Date: 20240927
  Transmission Date: 20241016
  Serious: Yes (Hospitalization)
  Sender: MYLAN
  Company Number: None

PATIENT
  Age: 21 Year
  Sex: Male
  Weight: 86 kg

DRUGS (3)
  1. SERTRALINE [Suspect]
     Active Substance: SERTRALINE HYDROCHLORIDE
     Indication: Product used for unknown indication
     Dosage: 550 MILLIGRAM, QD
     Route: 048
     Dates: start: 20240726, end: 20240726
  2. VENLAFAXINE [Suspect]
     Active Substance: VENLAFAXINE HYDROCHLORIDE
     Indication: Product used for unknown indication
     Dosage: 2025 MILLIGRAM, QD
     Route: 048
     Dates: start: 20240726, end: 20240726
  3. DIAZEPAM [Suspect]
     Active Substance: DIAZEPAM
     Indication: Product used for unknown indication
     Dosage: 400 MILLIGRAM, QD
     Route: 048
     Dates: start: 20240726, end: 20240726

REACTIONS (7)
  - Respiratory depression [Recovering/Resolving]
  - Pyramidal tract syndrome [Recovering/Resolving]
  - Poisoning deliberate [Recovered/Resolved]
  - Hypotension [Recovering/Resolving]
  - Coma [Recovering/Resolving]
  - Tachycardia [Recovering/Resolving]
  - Intentional overdose [Recovered/Resolved]

NARRATIVE: CASE EVENT DATE: 20240726
